FAERS Safety Report 6903267-0 (Version None)
Quarter: 2010Q3

REPORT INFORMATION
  Report Type: 
  Country: None (occurrence: None)
  Receive Date: 20100803
  Receipt Date: 20080819
  Transmission Date: 20110219
  Serious: No
  Sender: FDA-Public Use
  Company Number: US-PFIZER INC-2008064466

PATIENT
  Sex: Female

DRUGS (1)
  1. LYRICA [Suspect]
     Indication: LUMBAR RADICULOPATHY
     Dates: end: 20080401

REACTIONS (1)
  - MUSCLE TWITCHING [None]
